FAERS Safety Report 23394796 (Version 1)
Quarter: 2024Q1

REPORT INFORMATION
  Report Type: Spontaneous
  Country: US (occurrence: US)
  Receive Date: 20240112
  Receipt Date: 20240112
  Transmission Date: 20240410
  Serious: No
  Sender: FDA-Public Use
  Company Number: US-BoehringerIngelheim-2024-BI-001410

PATIENT
  Sex: Female

DRUGS (1)
  1. GILOTRIF [Suspect]
     Active Substance: AFATINIB
     Indication: Product used for unknown indication
     Dosage: FORM STRENGTH: 40 MILLIGRAM

REACTIONS (8)
  - Aphthous ulcer [Unknown]
  - Rash [Unknown]
  - Skin fissures [Unknown]
  - Rash [Unknown]
  - Swelling face [Unknown]
  - Pruritus [Unknown]
  - Skin exfoliation [Unknown]
  - Skin burning sensation [Unknown]
